FAERS Safety Report 15555556 (Version 2)
Quarter: 2024Q1

REPORT INFORMATION
  Report Type: Spontaneous
  Country: IT (occurrence: IT)
  Receive Date: 20181026
  Receipt Date: 20240320
  Transmission Date: 20240410
  Serious: Yes (Hospitalization, Other)
  Sender: FDA-Public Use
  Company Number: IT-MLMSERVICE-20170509-0718268-1

PATIENT
  Age: 53 Year
  Sex: Male

DRUGS (10)
  1. OXCARBAZEPINE [Suspect]
     Active Substance: OXCARBAZEPINE
     Indication: Seizure prophylaxis
     Dosage: UNK
     Route: 065
  2. LEVETIRACETAM [Suspect]
     Active Substance: LEVETIRACETAM
     Indication: Epilepsy
     Dosage: UNK
     Route: 065
  3. METHYLPREDNISOLONE [Suspect]
     Active Substance: METHYLPREDNISOLONE
     Indication: Immune thrombocytopenia
     Dosage: 1 MG/KG, DAILY
     Route: 040
  4. TRETINOIN [Suspect]
     Active Substance: TRETINOIN
     Indication: Acute promyelocytic leukaemia
     Dosage: UNK
     Route: 065
  5. FILGRASTIM [Suspect]
     Active Substance: FILGRASTIM
     Indication: Product used for unknown indication
     Dosage: UNK
     Route: 065
  6. IDARUBICIN [Suspect]
     Active Substance: IDARUBICIN
     Indication: Acute promyelocytic leukaemia
     Dosage: UNK
     Route: 065
  7. MITOXANTRONE [Suspect]
     Active Substance: MITOXANTRONE HYDROCHLORIDE
     Indication: Acute promyelocytic leukaemia
     Dosage: UNK
     Route: 065
  8. LOMUSTINE [Concomitant]
     Active Substance: LOMUSTINE
     Indication: Oligoastrocytoma
     Dosage: UNK
     Route: 065
     Dates: start: 2004
  9. PROCARBAZINE [Concomitant]
     Active Substance: PROCARBAZINE
     Indication: Oligoastrocytoma
     Dosage: UNK
     Route: 065
     Dates: start: 2004
  10. VINCRISTINE [Concomitant]
     Active Substance: VINCRISTINE
     Indication: Oligoastrocytoma
     Dosage: UNK
     Route: 065
     Dates: start: 2004

REACTIONS (8)
  - Neutropenia [Recovering/Resolving]
  - Febrile neutropenia [Recovering/Resolving]
  - Haemoglobin decreased [Recovering/Resolving]
  - Thrombocytopenia [Recovering/Resolving]
  - Lymphocytosis [Unknown]
  - Large granular lymphocytosis [Unknown]
  - Disease progression [Unknown]
  - Infection [Unknown]

NARRATIVE: CASE EVENT DATE: 20040101
